FAERS Safety Report 16976118 (Version 1)
Quarter: 2019Q4

REPORT INFORMATION
  Report Type: Spontaneous
  Country: FR (occurrence: FR)
  Receive Date: 20191030
  Receipt Date: 20191030
  Transmission Date: 20200122
  Serious: Yes (Hospitalization)
  Sender: FDA-Public Use
  Company Number: NVSC2019FR016574

PATIENT
  Age: 74 Year
  Sex: Female

DRUGS (2)
  1. KISQALI [Suspect]
     Active Substance: RIBOCICLIB
     Indication: PRODUCT USED FOR UNKNOWN INDICATION
     Dosage: 200 MG, TID
     Route: 065
     Dates: start: 20190823
  2. KISQALI [Suspect]
     Active Substance: RIBOCICLIB
     Dosage: 600 MG, TID (MORNING, NOON, EVENING)
     Route: 065
     Dates: start: 20190824, end: 20190824

REACTIONS (9)
  - Fatigue [Unknown]
  - Cerebrovascular accident [Unknown]
  - Liver function test abnormal [Not Recovered/Not Resolved]
  - Portal vein thrombosis [Unknown]
  - Gait disturbance [Unknown]
  - Medication error [Unknown]
  - Thrombocytopenia [Unknown]
  - Nausea [Recovered/Resolved]
  - General physical health deterioration [Unknown]

NARRATIVE: CASE EVENT DATE: 20190824
